FAERS Safety Report 19677603 (Version 1)
Quarter: 2021Q3

REPORT INFORMATION
  Report Type: Spontaneous
  Country: US (occurrence: US)
  Receive Date: 20210809
  Receipt Date: 20210809
  Transmission Date: 20211014
  Serious: Yes (Other)
  Sender: FDA-Public Use
  Company Number: US-JNJFOC-20210765740

PATIENT
  Age: 26 Year
  Sex: Female

DRUGS (2)
  1. SPRAVATO [Suspect]
     Active Substance: ESKETAMINE
     Indication: DEPRESSION
     Dates: start: 20210729, end: 20210729
  2. CLONIDINE. [Concomitant]
     Active Substance: CLONIDINE

REACTIONS (4)
  - Hypertension [Recovered/Resolved]
  - Nausea [Recovered/Resolved]
  - Chest pain [Recovered/Resolved]
  - Feeling hot [Unknown]

NARRATIVE: CASE EVENT DATE: 20210729
